FAERS Safety Report 14997782 (Version 1)
Quarter: 2018Q2

REPORT INFORMATION
  Report Type: Spontaneous
  Country: US (occurrence: US)
  Receive Date: 20180611
  Receipt Date: 20180611
  Transmission Date: 20180711
  Serious: No
  Sender: FDA-Public Use
  Company Number: US-BIOGEN-2016BI00251773

PATIENT
  Sex: Female

DRUGS (2)
  1. TECFIDERA [Suspect]
     Active Substance: DIMETHYL FUMARATE
     Dosage: MAINTENANCE DOSE
     Route: 048
     Dates: start: 20160421
  2. TECFIDERA [Suspect]
     Active Substance: DIMETHYL FUMARATE
     Indication: MULTIPLE SCLEROSIS
     Route: 065
     Dates: start: 20160420

REACTIONS (14)
  - Headache [Unknown]
  - Flushing [Recovered/Resolved]
  - Speech disorder [Unknown]
  - Night sweats [Unknown]
  - Abdominal distension [Unknown]
  - Vision blurred [Unknown]
  - Musculoskeletal disorder [Unknown]
  - Pain in extremity [Unknown]
  - Memory impairment [Unknown]
  - Drug ineffective [Unknown]
  - Back pain [Unknown]
  - Intentional product misuse [Unknown]
  - Paraesthesia [Unknown]
  - Rash erythematous [Unknown]
